FAERS Safety Report 26124005 (Version 1)
Quarter: 2025Q4

REPORT INFORMATION
  Report Type: Spontaneous
  Country: EU (occurrence: EU)
  Receive Date: 20251205
  Receipt Date: 20251205
  Transmission Date: 20260117
  Serious: Yes (Other)
  Sender: CELLTRION
  Company Number: EU-AMGEN-GRCSP2025230607

PATIENT

DRUGS (2)
  1. ADALIMUMAB [Suspect]
     Active Substance: ADALIMUMAB
     Indication: Colitis ulcerative
     Dosage: 40 MILLIGRAM, Q2WK (DOSAGE1: UNIT=NOT AVAILABLE)
     Route: 065
  2. ADALIMUMAB [Suspect]
     Active Substance: ADALIMUMAB

REACTIONS (5)
  - Colitis ulcerative [Recovered/Resolved]
  - Extranodal marginal zone B-cell lymphoma (MALT type) [Unknown]
  - B-cell lymphoma [Unknown]
  - Non-Hodgkin^s lymphoma [Unknown]
  - Dermatitis psoriasiform [Unknown]
